FAERS Safety Report 19489331 (Version 4)
Quarter: 2021Q3

REPORT INFORMATION
  Report Type: Report from Study
  Country: US (occurrence: US)
  Receive Date: 20210703
  Receipt Date: 20210915
  Transmission Date: 20211014
  Serious: No
  Sender: FDA-Public Use
  Company Number: NVSC2021US142844

PATIENT
  Age: 66 Year
  Sex: Female

DRUGS (7)
  1. COSENTYX [Suspect]
     Active Substance: SECUKINUMAB
     Dosage: UNK UNK, UNKNOWN
     Route: 058
     Dates: start: 20210722
  2. COSENTYX [Suspect]
     Active Substance: SECUKINUMAB
     Dosage: 300 MG, QMO
     Route: 058
     Dates: start: 20210421, end: 20210722
  3. COSENTYX [Suspect]
     Active Substance: SECUKINUMAB
     Dosage: 300 MG, QMO
     Route: 058
     Dates: start: 20210421, end: 20210722
  4. COSENTYX [Suspect]
     Active Substance: SECUKINUMAB
     Dosage: 300 MG, QMO
     Route: 058
     Dates: start: 20210421, end: 20210722
  5. COSENTYX [Suspect]
     Active Substance: SECUKINUMAB
     Indication: PSORIASIS
     Dosage: 300 MG (EVERY WEEK X 5 WEEKS THEN EVERY 4 WEEK)
     Route: 058
     Dates: start: 20210427
  6. COSENTYX [Suspect]
     Active Substance: SECUKINUMAB
     Dosage: 300 MG, QMO
     Route: 058
     Dates: start: 20210421, end: 20210722
  7. COSENTYX [Suspect]
     Active Substance: SECUKINUMAB
     Dosage: 300 MG, QMO
     Route: 058
     Dates: start: 20210421, end: 20210722

REACTIONS (8)
  - Skin plaque [Unknown]
  - Pustule [Unknown]
  - Diarrhoea [Unknown]
  - Tonsillitis [Not Recovered/Not Resolved]
  - Middle ear effusion [Unknown]
  - Streptococcal infection [Unknown]
  - Muscle spasms [Unknown]
  - Dermal cyst [Unknown]

NARRATIVE: CASE EVENT DATE: 20210601
